FAERS Safety Report 18063980 (Version 1)
Quarter: 2020Q3

REPORT INFORMATION
  Report Type: Spontaneous
  Country: US (occurrence: US)
  Receive Date: 20200724
  Receipt Date: 20200724
  Transmission Date: 20201103
  Serious: Yes (Hospitalization)
  Sender: FDA-Public Use
  Company Number: US-EMCURE PHARMACEUTICALS LTD-2020-EPL-000927

PATIENT
  Age: 43 Year
  Sex: Male

DRUGS (10)
  1. ZONISAMIDE. [Suspect]
     Active Substance: ZONISAMIDE
     Indication: EPILEPSY
     Dosage: 50 MILLIGRAM, QD
  2. ZONISAMIDE. [Interacting]
     Active Substance: ZONISAMIDE
     Dosage: 350 MILLIGRAM, QD
  3. VAPROIC ACID [Interacting]
     Active Substance: VALPROIC ACID
     Indication: EPILEPSY
     Dosage: 1500 MILLIGRAM, QD
  4. VAPROIC ACID [Interacting]
     Active Substance: VALPROIC ACID
     Dosage: 2000 MILLIGRAM, QD
  5. LEVETIRACETAM. [Suspect]
     Active Substance: LEVETIRACETAM
     Indication: EPILEPSY
     Dosage: 2000 MILLIGRAM, BID
  6. ZONISAMIDE. [Interacting]
     Active Substance: ZONISAMIDE
     Dosage: 600 MILLIGRAM, QD
  7. VAPROIC ACID [Interacting]
     Active Substance: VALPROIC ACID
     Dosage: 750 MILLIGRAM, QD
     Route: 042
  8. ZONISAMIDE. [Interacting]
     Active Substance: ZONISAMIDE
     Dosage: 500 MILLIGRAM, QD
  9. LORAZEPAM. [Concomitant]
     Active Substance: LORAZEPAM
     Indication: STATUS EPILEPTICUS
     Dosage: UNK
     Route: 042
  10. LEVETIRACETAM. [Suspect]
     Active Substance: LEVETIRACETAM
     Dosage: 4000 MILLIGRAM, BID

REACTIONS (3)
  - Drug interaction [Unknown]
  - Hyperammonaemic encephalopathy [Unknown]
  - Weight decreased [Recovered/Resolved]
